FAERS Safety Report 4982290-X (Version None)
Quarter: 2006Q1

REPORT INFORMATION
  Report Type: 
  Country: None (occurrence: None)
  Receive Date: 20060227
  Receipt Date: 20050414
  Transmission Date: 20060701
  Serious: Yes (Hospitalization)
  Sender: FDA-Public Use
  Company Number: WAES 0412USA00721

PATIENT
  Sex: Female

DRUGS (4)
  1. ZOCOR [Suspect]
     Indication: HYPERCHOLESTEROLAEMIA
     Dosage: 80 MG/DAILY/PO
     Route: 048
  2. ACTOS [Concomitant]
  3. LOPID [Concomitant]
  4. ALLOPURINOL [Concomitant]

REACTIONS (3)
  - DIABETES MELLITUS [None]
  - RENAL FAILURE [None]
  - RHABDOMYOLYSIS [None]
